FAERS Safety Report 5322347-7 (Version None)
Quarter: 2007Q2

REPORT INFORMATION
  Report Type: 
  Country: None (occurrence: None)
  Receive Date: 20070511
  Receipt Date: 20070508
  Transmission Date: 20071010
  Serious: Yes (Hospitalization)
  Sender: FDA-Public Use
  Company Number: US-ELI_LILLY_AND_COMPANY-US200704000495

PATIENT
  Age: 57 Year
  Sex: Female
  Weight: 67.12 kg

DRUGS (8)
  1. LANTUS [Concomitant]
     Indication: BLOOD GLUCOSE INCREASED
     Dosage: UNK, UNKNOWN
  2. SYNTHROID [Concomitant]
     Dosage: UNK, UNKNOWN
  3. HYDROCHLOROTHIAZIDE [Concomitant]
     Dosage: UNK, UNKNOWN
  4. ACTOS [Concomitant]
     Dosage: UNK, UNKNOWN
  5. METFORMIN HCL [Concomitant]
     Dosage: UNK, UNKNOWN
  6. BYETTA [Suspect]
     Indication: DIABETES MELLITUS NON-INSULIN-DEPENDENT
     Dosage: 5 UG, 2/D
     Route: 065
     Dates: start: 20050801, end: 20060601
  7. BYETTA [Suspect]
     Dosage: 5 UG, 2/D
     Route: 058
     Dates: start: 20070105, end: 20070201
  8. BYETTA [Suspect]
     Dosage: 10 U, 2/D
     Route: 058
     Dates: start: 20070201

REACTIONS (7)
  - BLOOD GLUCOSE INCREASED [None]
  - INCORRECT DOSE ADMINISTERED [None]
  - INJECTION SITE PAIN [None]
  - INJECTION SITE RASH [None]
  - PNEUMONIA [None]
  - URINARY TRACT INFECTION [None]
  - UROSEPSIS [None]
